FAERS Safety Report 13942840 (Version 1)
Quarter: 2017Q3

REPORT INFORMATION
  Report Type: Spontaneous
  Country: US (occurrence: None)
  Receive Date: 20170907
  Receipt Date: 20170907
  Transmission Date: 20171127
  Serious: Yes (Hospitalization)
  Sender: FDA-Public Use
  Company Number: None

PATIENT
  Age: 48 Year
  Sex: Female

DRUGS (8)
  1. VITAMIN E [Concomitant]
     Active Substance: .ALPHA.-TOCOPHEROL
  2. TAMOXIFEN [Concomitant]
     Active Substance: TAMOXIFEN
  3. IBRANCE [Suspect]
     Active Substance: PALBOCICLIB
     Indication: BREAST CANCER
     Route: 048
     Dates: start: 20170701
  4. ASPIRIN. [Concomitant]
     Active Substance: ASPIRIN
  5. XGEVA [Concomitant]
     Active Substance: DENOSUMAB
  6. LETROZOLE. [Concomitant]
     Active Substance: LETROZOLE
  7. VITAMIN D3 [Concomitant]
     Active Substance: CHOLECALCIFEROL
  8. CALCIUM [Concomitant]
     Active Substance: CALCIUM

REACTIONS (2)
  - Drug dose omission [None]
  - Infection [None]

NARRATIVE: CASE EVENT DATE: 20170825
